FAERS Safety Report 9207115 (Version 1)
Quarter: 2013Q1

REPORT INFORMATION
  Report Type: Spontaneous
  Country: US (occurrence: None)
  Receive Date: 20120731
  Receipt Date: 20120731
  Transmission Date: 20140127
  Serious: Yes (Hospitalization)
  Sender: FDA-Public Use
  Company Number: 2012MZ000306

PATIENT
  Age: 73 Year
  Sex: Female

DRUGS (1)
  1. XEOMIN [Suspect]
     Indication: SALIVARY HYPERSECRETION

REACTIONS (2)
  - Dysphagia [None]
  - Off label use [None]
